FAERS Safety Report 7094970-3 (Version None)
Quarter: 2010Q4

REPORT INFORMATION
  Report Type: 
  Country: None (occurrence: None)
  Receive Date: 20101111
  Receipt Date: 20101102
  Transmission Date: 20110411
  Serious: No
  Sender: FDA-Public Use
  Company Number: US-BIOGENIDEC-2010BI038681

PATIENT
  Sex: Female

DRUGS (2)
  1. TYSABRI [Suspect]
     Indication: MULTIPLE SCLEROSIS
     Route: 042
     Dates: start: 20080613, end: 20080912
  2. TYSABRI [Suspect]
     Route: 042
     Dates: start: 20100902

REACTIONS (6)
  - AMNESIA [None]
  - BACK PAIN [None]
  - FATIGUE [None]
  - GAIT DISTURBANCE [None]
  - MULTIPLE SCLEROSIS [None]
  - OROPHARYNGEAL PAIN [None]
